FAERS Safety Report 10047993 (Version 2)
Quarter: 2014Q2

REPORT INFORMATION
  Report Type: Report from Study
  Country: US (occurrence: US)
  Receive Date: 20140331
  Receipt Date: 20140407
  Transmission Date: 20141212
  Serious: Yes (Death, Hospitalization, Other)
  Sender: FDA-Public Use
  Company Number: US-ALEXION PHARMACEUTICALS INC.-A200901292

PATIENT
  Sex: 0

DRUGS (2)
  1. SOLIRIS [Suspect]
     Indication: PAROXYSMAL NOCTURNAL HAEMOGLOBINURIA
     Dosage: 600 MG, SINGLE
     Route: 042
  2. SOLIRIS [Suspect]
     Dosage: , Q2W
     Route: 042

REACTIONS (7)
  - Death [Fatal]
  - Dehydration [Unknown]
  - Asthenia [Unknown]
  - Decreased appetite [Unknown]
  - Cardiac disorder [Unknown]
  - Infection [Unknown]
  - Contusion [Unknown]
